FAERS Safety Report 10505785 (Version 2)
Quarter: 2014Q4

REPORT INFORMATION
  Report Type: Spontaneous
  Country: ES (occurrence: ES)
  Receive Date: 20141008
  Receipt Date: 20141014
  Transmission Date: 20150528
  Serious: Yes (Life-Threatening, Hospitalization, Other)
  Sender: FDA-Public Use
  Company Number: PHHY2014ES129735

PATIENT
  Sex: Female

DRUGS (1)
  1. GILENYA [Suspect]
     Active Substance: FINGOLIMOD HYDROCHLORIDE
     Indication: RELAPSING-REMITTING MULTIPLE SCLEROSIS
     Route: 048
     Dates: start: 20130906, end: 20140526

REACTIONS (16)
  - Leukopenia [Unknown]
  - Neutropenia [Unknown]
  - Amenorrhoea [Unknown]
  - Multiple sclerosis relapse [Unknown]
  - Normochromic normocytic anaemia [Recovered/Resolved]
  - Central nervous system lesion [Unknown]
  - Asthenia [Unknown]
  - Diplopia [Not Recovered/Not Resolved]
  - Toxicity to various agents [Unknown]
  - Biopsy bone marrow abnormal [Unknown]
  - Paraparesis [Unknown]
  - Bicytopenia [Unknown]
  - Pallor [Unknown]
  - Lymphopenia [Unknown]
  - Balance disorder [Recovering/Resolving]
  - Nystagmus [Unknown]

NARRATIVE: CASE EVENT DATE: 201402
